FAERS Safety Report 8780546 (Version 1)
Quarter: 2012Q4

REPORT INFORMATION
  Report Type: 
  Country: US (occurrence: US)
  Receive Date: 20120913
  Receipt Date: 20120913
  Transmission Date: 20130627
  Serious: Yes (Other)
  Sender: FDA-Public Use
  Company Number: US-PFIZER INC-2012225436

PATIENT
  Sex: Female
  Weight: 53.97 kg

DRUGS (8)
  1. LYRICA [Suspect]
     Indication: FIBROMYALGIA
     Dosage: UNK
  2. LYRICA [Suspect]
     Indication: MYOSITIS
  3. NEURONTIN [Suspect]
     Indication: FIBROMYALGIA
     Dosage: UNK
  4. NEURONTIN [Suspect]
     Indication: MYOSITIS
  5. ATIVAN [Concomitant]
     Indication: NERVOUSNESS
     Dosage: 1 mg, 4x/day
  6. ATIVAN [Concomitant]
     Indication: ANXIETY
  7. BYSTOLIC [Concomitant]
     Indication: HYPERTENSION
     Dosage: UNK,daily
  8. HYDROCHLOROTHIAZIDE [Concomitant]
     Indication: HYPERTENSION
     Dosage: 12.5 mg, 2x/day

REACTIONS (4)
  - Hypersensitivity [Unknown]
  - Rash [Unknown]
  - Swollen tongue [Unknown]
  - Drug ineffective [Unknown]
